FAERS Safety Report 11495884 (Version 1)
Quarter: 2015Q3

REPORT INFORMATION
  Report Type: Spontaneous
  Country: US (occurrence: US)
  Receive Date: 20150911
  Receipt Date: 20150911
  Transmission Date: 20151125
  Serious: Yes (Hospitalization)
  Sender: FDA-Public Use
  Company Number: US-JNJFOC-20150906519

PATIENT
  Age: 56 Year
  Sex: Male
  Weight: 64.41 kg

DRUGS (5)
  1. EPZICOM [Suspect]
     Active Substance: ABACAVIR SULFATE\LAMIVUDINE
     Indication: HIV INFECTION
     Route: 065
     Dates: start: 2013
  2. NORVIR [Suspect]
     Active Substance: RITONAVIR
     Indication: HIV INFECTION
     Route: 065
     Dates: start: 2013
  3. PREZISTA [Suspect]
     Active Substance: DARUNAVIR ETHANOLATE
     Indication: HIV INFECTION
     Route: 048
     Dates: start: 2013
  4. LEVITRA [Concomitant]
     Active Substance: VARDENAFIL HYDROCHLORIDE TRIHYDRATE
     Indication: ADVERSE EVENT
     Route: 065
  5. CIALIS [Concomitant]
     Active Substance: TADALAFIL
     Indication: ADVERSE EVENT
     Route: 065
     Dates: start: 201508

REACTIONS (5)
  - Pyrexia [Unknown]
  - Adverse event [Unknown]
  - Mental fatigue [Unknown]
  - Fatigue [Unknown]
  - Post-traumatic stress disorder [Unknown]

NARRATIVE: CASE EVENT DATE: 201508
